FAERS Safety Report 25853500 (Version 1)
Quarter: 2025Q3

REPORT INFORMATION
  Report Type: Spontaneous
  Country: CA (occurrence: CA)
  Receive Date: 20250926
  Receipt Date: 20250926
  Transmission Date: 20251020
  Serious: Yes (Disabling)
  Sender: BRISTOL-MYERS SQUIBB COMPANY
  Company Number: CA-BRISTOL-MYERS SQUIBB COMPANY-2025-129561

PATIENT
  Sex: Female

DRUGS (1)
  1. ORENCIA [Suspect]
     Active Substance: ABATACEPT
     Indication: Rheumatoid arthritis
     Dates: start: 20191026

REACTIONS (8)
  - Weight decreased [Unknown]
  - Eating disorder [Unknown]
  - Dry mouth [Unknown]
  - Dry skin [Unknown]
  - Dry eye [Unknown]
  - Insomnia [Unknown]
  - Fatigue [Unknown]
  - Taste disorder [Unknown]
